FAERS Safety Report 5757557-8 (Version None)
Quarter: 2008Q2

REPORT INFORMATION
  Report Type: 
  Country: None (occurrence: None)
  Receive Date: 20080603
  Receipt Date: 20080523
  Transmission Date: 20081010
  Serious: Yes (Death, Hospitalization)
  Sender: FDA-Public Use
  Company Number: AR-PFIZER INC-2006140704

PATIENT
  Sex: Male
  Weight: 96 kg

DRUGS (14)
  1. SU-011,248 [Suspect]
     Indication: METASTATIC RENAL CELL CARCINOMA
     Route: 048
     Dates: start: 20060502, end: 20061108
  2. SU-011,248 [Suspect]
     Indication: RENAL CANCER
  3. ENALAPRIL MALEATE [Concomitant]
     Route: 048
     Dates: start: 20040101, end: 20061110
  4. AMLODIPINE [Concomitant]
     Route: 048
     Dates: start: 20040101, end: 20061110
  5. AMIODARONE HCL [Concomitant]
     Route: 048
     Dates: start: 20040101, end: 20061110
  6. ASPIRIN [Concomitant]
     Route: 048
     Dates: start: 20040101, end: 20061110
  7. CARVEDILOL [Concomitant]
     Route: 048
     Dates: start: 20040101, end: 20061110
  8. AMOXICILLIN + CLAVULANATE POTASSIUM [Concomitant]
     Route: 048
     Dates: start: 20061109, end: 20061110
  9. CEFTRIAXONE [Concomitant]
     Route: 042
     Dates: start: 20061110, end: 20061113
  10. HYDROCORTISONE [Concomitant]
     Route: 042
     Dates: start: 20061110, end: 20061113
  11. RANITIDINE [Concomitant]
     Route: 042
     Dates: start: 20061110, end: 20061113
  12. ALBUTEROL [Concomitant]
     Route: 055
     Dates: start: 20061112, end: 20061113
  13. VITAMIN K TAB [Concomitant]
     Route: 042
     Dates: start: 20061111, end: 20061113
  14. FLUCONAZOLE [Concomitant]
     Route: 042
     Dates: start: 20061112, end: 20061113

REACTIONS (2)
  - ADRENAL INSUFFICIENCY [None]
  - PNEUMONIA [None]
